FAERS Safety Report 24995985 (Version 2)
Quarter: 2025Q2

REPORT INFORMATION
  Report Type: Spontaneous
  Country: US (occurrence: US)
  Receive Date: 20250221
  Receipt Date: 20250521
  Transmission Date: 20250716
  Serious: No
  Sender: CATALYST PHARMA
  Company Number: US-CATALYST PHARMACEUTICALS-US-CATA-24-01257

PATIENT
  Sex: Male
  Weight: 84.807 kg

DRUGS (6)
  1. AGAMREE [Suspect]
     Active Substance: VAMOROLONE
     Indication: Duchenne muscular dystrophy
     Dosage: 7.5 ML BY MOUTH DAILY
     Route: 048
     Dates: start: 20240614, end: 20250218
  2. AGAMREE [Suspect]
     Active Substance: VAMOROLONE
     Dosage: 6.5 ML DAILY
     Route: 048
     Dates: start: 20250218
  3. DOXYCYCLINE [Concomitant]
     Active Substance: DOXYCYCLINE
     Indication: Blepharitis
     Dosage: 50 MG ONCE A DAY
     Route: 065
  4. EPLERENONE [Concomitant]
     Active Substance: EPLERENONE
     Indication: Cardiovascular event prophylaxis
     Dosage: 25 MG DAILY
     Route: 065
  5. LISINOPRIL [Concomitant]
     Active Substance: LISINOPRIL
     Indication: Cardiovascular event prophylaxis
     Dosage: 20 MG DAILY
     Route: 065
  6. VITAMIN D3 [Concomitant]
     Active Substance: CHOLECALCIFEROL
     Indication: Hypovitaminosis
     Dosage: 1000 UNITS DAILY
     Route: 065

REACTIONS (2)
  - Asthenia [Not Recovered/Not Resolved]
  - Weight increased [Not Recovered/Not Resolved]

NARRATIVE: CASE EVENT DATE: 20240101
